FAERS Safety Report 4315035-7 (Version None)
Quarter: 2004Q1

REPORT INFORMATION
  Report Type: 
  Country: None (occurrence: None)
  Receive Date: 20040309
  Receipt Date: 20040223
  Transmission Date: 20041129
  Serious: Yes (Hospitalization)
  Sender: FDA-Public Use
  Company Number: UK059707

PATIENT
  Age: 14 Year
  Sex: Male

DRUGS (2)
  1. NEUPOGEN [Suspect]
     Indication: CHEMOTHERAPY
     Dosage: 700 MCG, PER CHEMO REGIMEN, SC
     Route: 058
     Dates: start: 20030929, end: 20031004
  2. IRINOTECAN [Suspect]
     Dosage: 37 MG, IV
     Route: 042
     Dates: start: 20030101, end: 20030926

REACTIONS (7)
  - DEHYDRATION [None]
  - DIARRHOEA [None]
  - EJECTION FRACTION DECREASED [None]
  - GRANULOCYTOPENIA [None]
  - HYPOTENSION [None]
  - URINARY RETENTION [None]
  - VOMITING [None]
